FAERS Safety Report 25469845 (Version 2)
Quarter: 2025Q4

REPORT INFORMATION
  Report Type: Spontaneous
  Country: CA (occurrence: CA)
  Receive Date: 20250623
  Receipt Date: 20251027
  Transmission Date: 20260118
  Serious: Yes (Life-Threatening, Hospitalization, Other)
  Sender: HLS THERAPEUTICS
  Company Number: CA-HLS-202501525

PATIENT
  Age: 46 Year
  Sex: Male
  Weight: 72 kg

DRUGS (2)
  1. CLOZAPINE [Suspect]
     Active Substance: CLOZAPINE
     Indication: Product used for unknown indication
     Dosage: TABLETS DOSAGE FORM
     Route: 065
  2. OLANZAPINE [Concomitant]
     Active Substance: OLANZAPINE
     Dosage: NOT SPECIFIED DOSAGE FORM
     Route: 065

REACTIONS (4)
  - Agranulocytosis [Recovered/Resolved]
  - Influenza like illness [Recovered/Resolved]
  - Neutrophil count decreased [Recovered/Resolved]
  - Oropharyngeal pain [Recovered/Resolved]
